FAERS Safety Report 8274355-4 (Version None)
Quarter: 2012Q2

REPORT INFORMATION
  Report Type: 
  Country: None (occurrence: None)
  Receive Date: 20120411
  Receipt Date: 20120402
  Transmission Date: 20120825
  Serious: Yes (Other)
  Sender: FDA-Public Use
  Company Number: JP-GENZYME-FABR-1002385

PATIENT
  Sex: Male
  Weight: 65 kg

DRUGS (9)
  1. FABRAZYME [Suspect]
     Dosage: 0 MG, Q4W
     Dates: start: 20110601
  2. FABRAZYME [Suspect]
     Dosage: 65 MG, Q2W
     Route: 042
     Dates: start: 20100501
  3. FABRAZYME [Suspect]
     Indication: FABRY'S DISEASE
     Dosage: 1 MG/KG, Q2W
     Route: 042
     Dates: start: 20110701
  4. FABRAZYME [Suspect]
     Dosage: 35 MG, Q2W
     Route: 042
     Dates: start: 20101101
  5. FABRAZYME [Suspect]
     Dosage: 65 MG, Q2W
     Route: 042
     Dates: start: 20101201
  6. FABRAZYME [Suspect]
     Dosage: 35 MG, Q4W
     Route: 042
     Dates: start: 20091101
  7. FABRAZYME [Suspect]
     Dosage: 65 MG, Q4W
     Route: 042
     Dates: start: 20101001
  8. FABRAZYME [Suspect]
     Dosage: 55 MG, Q2W
     Route: 042
     Dates: start: 20120201
  9. FABRAZYME [Suspect]
     Dosage: 35 MG, Q4W
     Route: 042
     Dates: start: 20100801

REACTIONS (1)
  - DEAFNESS UNILATERAL [None]
